FAERS Safety Report 8272343-5 (Version None)
Quarter: 2012Q1

REPORT INFORMATION
  Report Type: 
  Country: None (occurrence: None)
  Receive Date: 20120314
  Receipt Date: 20100705
  Transmission Date: 20120608
  Serious: No
  Sender: FDA-Public Use
  Company Number: PHHY2010US42423

PATIENT
  Age: 24 Year
  Sex: Male

DRUGS (2)
  1. ZYPREXA [Concomitant]
  2. FANAPT [Suspect]
     Indication: SCHIZOPHRENIA
     Dosage: 12 MG, BID, ORAL
     Route: 048
     Dates: start: 20100421, end: 20100618

REACTIONS (2)
  - RHINITIS [None]
  - NASAL CONGESTION [None]
